FAERS Safety Report 4541560-X (Version None)
Quarter: 2004Q4

REPORT INFORMATION
  Report Type: 
  Country: None (occurrence: None)
  Receive Date: 20041227
  Receipt Date: 20041215
  Transmission Date: 20050328
  Serious: Yes (Hospitalization)
  Sender: FDA-Public Use
  Company Number: 2004116064

PATIENT
  Age: 92 Year
  Sex: Female

DRUGS (5)
  1. SPIRONOLACTONE [Suspect]
     Indication: ESSENTIAL HYPERTENSION
     Dosage: 25 MG (25 MG, DAILY INTERVAL: EVERY DAY), ORAL
     Route: 048
     Dates: start: 20040801, end: 20040916
  2. ENALAPRIL (ENALAPRIL) [Suspect]
     Indication: ESSENTIAL HYPERTENSION
     Dosage: 10 MG (5 MG, BID), ORAL
     Route: 048
     Dates: start: 20031101, end: 20040916
  3. FUROSEMIDE [Concomitant]
  4. AMIODARONE HCL [Concomitant]
  5. ACETAMINOPHEN [Concomitant]

REACTIONS (3)
  - BLOOD CREATININE INCREASED [None]
  - HYPERKALAEMIA [None]
  - SYNCOPE [None]
